FAERS Safety Report 5168031-4 (Version None)
Quarter: 2006Q4

REPORT INFORMATION
  Report Type: 
  Country: None (occurrence: None)
  Receive Date: 20061208
  Receipt Date: 20060321
  Transmission Date: 20070319
  Serious: No
  Sender: FDA-Public Use
  Company Number: US-GLAXOSMITHKLINE-A0598409A

PATIENT
  Age: 71 Year
  Sex: Female

DRUGS (12)
  1. AVANDAMET [Suspect]
     Dosage: 1TAB TWICE PER DAY
     Route: 048
     Dates: start: 20040101, end: 20050101
  2. INSULIN [Suspect]
     Indication: DRUG USE FOR UNKNOWN INDICATION
     Route: 065
  3. AVANDIA [Suspect]
     Dosage: 2MG TWICE PER DAY
     Route: 048
     Dates: start: 20050101, end: 20060321
  4. TOPROL-XL [Concomitant]
  5. BUMEX [Concomitant]
  6. LIPITOR [Concomitant]
  7. VASOTEC [Concomitant]
  8. VIT C [Concomitant]
  9. FOLIC ACID [Concomitant]
  10. MAGNESIUM [Concomitant]
  11. VITAMINS [Concomitant]
  12. GLUCOPHAGE [Concomitant]

REACTIONS (4)
  - ARRHYTHMIA [None]
  - DRUG INTERACTION [None]
  - FATIGUE [None]
  - PALPITATIONS [None]
